FAERS Safety Report 10248176 (Version 1)
Quarter: 2014Q2

REPORT INFORMATION
  Report Type: Spontaneous
  Country: JP (occurrence: JP)
  Receive Date: 20140620
  Receipt Date: 20140620
  Transmission Date: 20141212
  Serious: Yes (Hospitalization)
  Sender: FDA-Public Use
  Company Number: JP-ABBVIE-14P-087-1249726-00

PATIENT
  Age: 44 Year
  Sex: Male

DRUGS (1)
  1. KLARICID TABLETS 200MG [Suspect]
     Indication: PRODUCT USED FOR UNKNOWN INDICATION
     Route: 048
     Dates: start: 201309, end: 201309

REACTIONS (1)
  - Drug eruption [Unknown]
